FAERS Safety Report 8818492 (Version 1)
Quarter: 2012Q4

REPORT INFORMATION
  Report Type: 
  Country: US (occurrence: US)
  Receive Date: 20121002
  Receipt Date: 20121002
  Transmission Date: 20130627
  Serious: Yes (Other)
  Sender: FDA-Public Use
  Company Number: US-COVIDIEN/TYCO HEALTHCARE/MALLINCKRODT-T201201548

PATIENT
  Sex: Male

DRUGS (5)
  1. EXALGO EXTENDED RELEASE [Suspect]
     Indication: PAIN
     Dosage: 8 mg bid
  2. EXALGO EXTENDED RELEASE [Suspect]
     Dosage: 8 mg, tid
     Route: 048
  3. STEROID INHALER [Concomitant]
  4. XANAX [Concomitant]
     Indication: ANXIETY
  5. OXYCODONE [Concomitant]
     Indication: BREAKTHROUGH PAIN

REACTIONS (3)
  - Dyspnoea [Recovered/Resolved]
  - Drug withdrawal syndrome [Not Recovered/Not Resolved]
  - Drug effect decreased [Not Recovered/Not Resolved]
